FAERS Safety Report 11750353 (Version 1)
Quarter: 2015Q4

REPORT INFORMATION
  Report Type: Spontaneous
  Country: AT (occurrence: AT)
  Receive Date: 20151118
  Receipt Date: 20151118
  Transmission Date: 20160304
  Serious: Yes (Other)
  Sender: FDA-Public Use
  Company Number: AT-JNJFOC-20151116947

PATIENT
  Age: 27 Year
  Sex: Male

DRUGS (13)
  1. SIMPONI [Suspect]
     Active Substance: GOLIMUMAB
     Indication: SPONDYLITIS
     Route: 058
     Dates: start: 20150528, end: 2015
  2. EUTHYROX [Concomitant]
     Active Substance: LEVOTHYROXINE SODIUM
     Route: 065
  3. TRESLEEN [Concomitant]
     Active Substance: SERTRALINE HYDROCHLORIDE
     Route: 065
  4. OMEPRAZOLE SODIUM [Concomitant]
     Active Substance: OMEPRAZOLE SODIUM
     Route: 065
  5. SERACTIL [Concomitant]
     Active Substance: DEXIBUPROFEN
     Route: 065
  6. VITAMIN A, PLAIN [Concomitant]
     Route: 065
  7. HALCION [Concomitant]
     Active Substance: TRIAZOLAM
     Route: 065
  8. SOLIAN [Concomitant]
     Active Substance: AMISULPRIDE
     Route: 065
  9. OLEOVIT-D3 [Concomitant]
     Dosage: 7-10 GUTTS PER DAY
     Route: 065
  10. SEROQUEL [Concomitant]
     Active Substance: QUETIAPINE FUMARATE
     Route: 065
  11. METFORMIN [Concomitant]
     Active Substance: METFORMIN HYDROCHLORIDE
     Route: 065
  12. OMEGA-3 FATTY ACIDS [Concomitant]
     Active Substance: OMEGA-3 FATTY ACIDS
     Route: 065
  13. TRAVOCORT [Concomitant]
     Route: 061

REACTIONS (3)
  - Neuralgic amyotrophy [Unknown]
  - Glossodynia [Unknown]
  - Dysgeusia [Unknown]

NARRATIVE: CASE EVENT DATE: 2015
